FAERS Safety Report 18377769 (Version 1)
Quarter: 2020Q4

REPORT INFORMATION
  Report Type: Report from Study
  Country: CA (occurrence: CA)
  Receive Date: 20201013
  Receipt Date: 20201013
  Transmission Date: 20210114
  Serious: Yes (Hospitalization, Other)
  Sender: FDA-Public Use
  Company Number: CA-PFIZER INC-2020389300

PATIENT
  Age: 63 Year
  Sex: Male

DRUGS (99)
  1. INSPRA [Suspect]
     Active Substance: EPLERENONE
     Dosage: 50 MG 1 EVERY 1 DAYS
     Route: 065
  2. BREO ELLIPTA [Suspect]
     Active Substance: FLUTICASONE FUROATE\VILANTEROL TRIFENATATE
     Dosage: 1 DF 1 EVERY 1 DAYS
     Route: 055
  3. ENTRESTO [Suspect]
     Active Substance: SACUBITRIL\VALSARTAN
     Dosage: 1 DF 2 EVERY 1 DAYS
     Route: 048
  4. MONTELUKAST SODIUM. [Suspect]
     Active Substance: MONTELUKAST SODIUM
     Dosage: 10 MG 1 EVERY 1 DAYS
     Route: 048
  5. PMS AZITHROMYCIN [Suspect]
     Active Substance: AZITHROMYCIN ANHYDROUS
     Dosage: 250 MG
     Route: 065
  6. SALBUTAMOL SULFATE [Suspect]
     Active Substance: ALBUTEROL SULFATE
     Dosage: 2 DF
     Route: 055
  7. SEEBRI BREEZHALER [Suspect]
     Active Substance: GLYCOPYRROLATE
     Indication: ASTHMA
     Dosage: 1 DF 1 EVERY 1 DAYS
     Route: 055
  8. VENTOLIN HFA [Suspect]
     Active Substance: ALBUTEROL SULFATE
     Dosage: 2 DF
     Route: 065
  9. AIROMIR [SALBUTAMOL] [Suspect]
     Active Substance: ALBUTEROL SULFATE
     Dosage: 2 DF
     Route: 055
  10. AIROMIR [SALBUTAMOL] [Suspect]
     Active Substance: ALBUTEROL SULFATE
     Dosage: 2 DF 4 EVERY 1 DAYS
     Route: 065
  11. ALVESCO [Suspect]
     Active Substance: CICLESONIDE
     Dosage: 2 DF 2 EVERY 1 DAYS
     Route: 065
  12. ALVESCO [Suspect]
     Active Substance: CICLESONIDE
     Dosage: 2 DF 2 EVERY 1 DAYS
     Route: 065
  13. APO-DOXY [DOXYCYCLINE HYCLATE] [Suspect]
     Active Substance: DOXYCYCLINE HYCLATE
     Dosage: 100 MG
     Route: 065
  14. APO-PREDNISONE [Suspect]
     Active Substance: PREDNISONE
     Dosage: 50 MG 1 EVERY 1 DAYS
     Route: 048
  15. APO-PREDNISONE [Suspect]
     Active Substance: PREDNISONE
     Dosage: 50 MG 1 EVERY 1 DAYS
     Route: 048
  16. APO-PREDNISONE [Suspect]
     Active Substance: PREDNISONE
     Dosage: 5 MG
     Route: 065
  17. COVERSYL [PERINDOPRIL ERBUMINE] [Suspect]
     Active Substance: PERINDOPRIL ERBUMINE
     Dosage: 8 MG 1 EVERY 1 DAYS
     Route: 065
  18. COVERSYL PLUS HD [Suspect]
     Active Substance: INDAPAMIDE\PERINDOPRIL ERBUMINE
     Dosage: 1 DF 1 EVERY 1 DAYS
     Route: 065
  19. COVERSYL PLUS HD [Suspect]
     Active Substance: INDAPAMIDE\PERINDOPRIL ERBUMINE
     Dosage: 1 DF 1 EVERY 1 DAYS
     Route: 065
  20. ENTRESTO [Suspect]
     Active Substance: SACUBITRIL\VALSARTAN
     Dosage: 1 DF 2 EVERY 1 DAYS
     Route: 048
  21. FLUTICASONE PROPIONATE/SALMETEROL XINAFOATE [Suspect]
     Active Substance: FLUTICASONE PROPIONATE\SALMETEROL XINAFOATE
     Dosage: 2 DF 2 EVERY 1 DAYS
     Route: 055
  22. FUROSEMIDE. [Suspect]
     Active Substance: FUROSEMIDE
     Dosage: 20 MG 1 EVERY 1 DAYS
     Route: 065
  23. IVABRADINE HYDROCHLORIDE [Suspect]
     Active Substance: IVABRADINE HYDROCHLORIDE
     Dosage: 7.5 MG 2 EVERY 1 DAYS
     Route: 048
  24. MONTELUKAST SODIUM. [Suspect]
     Active Substance: MONTELUKAST SODIUM
     Dosage: 10 MG 1 EVERY 1 DAYS
     Route: 065
  25. ZENHALE [Suspect]
     Active Substance: FORMOTEROL FUMARATE\MOMETASONE FUROATE
     Dosage: 2 DF 2 EVERY 1 DAYS
     Route: 055
  26. ZENHALE [Suspect]
     Active Substance: FORMOTEROL FUMARATE\MOMETASONE FUROATE
     Dosage: UNK
     Route: 065
  27. INSPRA [Suspect]
     Active Substance: EPLERENONE
     Dosage: 50 MG 1 EVERY 1 DAYS
     Route: 048
  28. INSPRA [Suspect]
     Active Substance: EPLERENONE
     Dosage: 50 MG 1 EVERY 1 DAYS
     Route: 065
  29. INSPRA [Suspect]
     Active Substance: EPLERENONE
     Dosage: 50 MG 1 EVERY 1 DAYS
     Route: 048
  30. ALVESCO [Suspect]
     Active Substance: CICLESONIDE
     Dosage: 2 DF 2 EVERY 1 DAYS
     Route: 065
  31. APO-BISOPROLOL [Suspect]
     Active Substance: BISOPROLOL FUMARATE
     Dosage: 0.25 DF 1 EVERY 1 DAYS
     Route: 065
  32. APO-DOXY [DOXYCYCLINE HYCLATE] [Suspect]
     Active Substance: DOXYCYCLINE HYCLATE
     Dosage: 100 MG 2 EVERY 1 DAYS
     Route: 048
  33. APO-PREDNISONE [Suspect]
     Active Substance: PREDNISONE
     Dosage: 5 MG
     Route: 065
  34. APO-PREDNISONE [Suspect]
     Active Substance: PREDNISONE
     Dosage: 5 MG
     Route: 065
  35. APO-PREDNISONE [Suspect]
     Active Substance: PREDNISONE
     Dosage: 25 MG 1 EVERY 1 DAYS
     Route: 065
  36. APO-PREDNISONE [Suspect]
     Active Substance: PREDNISONE
     Dosage: 25 MG 1 EVERY 1 DAYS
     Route: 065
  37. APO-TRAMADOL/ACET [Suspect]
     Active Substance: ACETAMINOPHEN\TRAMADOL HYDROCHLORIDE
     Dosage: UNK
     Route: 048
  38. COVERSYL PLUS HD [Suspect]
     Active Substance: INDAPAMIDE\PERINDOPRIL ERBUMINE
     Dosage: 1 DF 1 EVERY 1 DAYS
     Route: 065
  39. ENTRESTO [Suspect]
     Active Substance: SACUBITRIL\VALSARTAN
     Dosage: 1 DF 2 EVERY 1 DAYS
     Route: 048
  40. MONTELUKAST SODIUM. [Suspect]
     Active Substance: MONTELUKAST SODIUM
     Dosage: 10 MG 1 EVERY 1 DAYS
     Route: 065
  41. SALBUTAMOL SULFATE [Suspect]
     Active Substance: ALBUTEROL SULFATE
     Dosage: 2 DF
     Route: 055
  42. MONTELUKAST TEVA [Suspect]
     Active Substance: MONTELUKAST SODIUM
     Dosage: 10 MG 1 EVERY 1 DAYS
     Route: 065
  43. INSPRA [Suspect]
     Active Substance: EPLERENONE
     Dosage: 50 MG 1 EVERY 1 DAYS
     Route: 065
  44. CHAMPIX [Suspect]
     Active Substance: VARENICLINE TARTRATE
     Dosage: UNK
     Route: 065
  45. APO-DOXY [DOXYCYCLINE HYCLATE] [Suspect]
     Active Substance: DOXYCYCLINE HYCLATE
     Dosage: 100 MG 2 EVERY 1 DAYS
     Route: 065
  46. APO-DOXY [DOXYCYCLINE HYCLATE] [Suspect]
     Active Substance: DOXYCYCLINE HYCLATE
     Dosage: 100 MG 2 EVERY 1 DAYS
     Route: 048
  47. APO-PREDNISONE [Suspect]
     Active Substance: PREDNISONE
     Dosage: 50 MG 1 EVERY 1 DAYS
     Route: 048
  48. APO-PREDNISONE [Suspect]
     Active Substance: PREDNISONE
     Dosage: 25 MG 1 EVERY 1 DAYS
     Route: 065
  49. ATROVENT HFA [Suspect]
     Active Substance: IPRATROPIUM BROMIDE
     Dosage: 20 UG 4 EVERY 1 DAYS
     Route: 055
  50. ENTRESTO [Suspect]
     Active Substance: SACUBITRIL\VALSARTAN
     Dosage: 1 DF 2 EVERY 1 DAYS
     Route: 048
  51. FUROSEMIDE. [Suspect]
     Active Substance: FUROSEMIDE
     Dosage: 20 MG 1 EVERY 1 DAYS
     Route: 065
  52. SALBUTAMOL SULFATE [Suspect]
     Active Substance: ALBUTEROL SULFATE
     Dosage: 2 DF
     Route: 055
  53. APO-PREDNISONE [Suspect]
     Active Substance: PREDNISONE
     Dosage: 50 MG 1 EVERY 1 DAYS
     Route: 048
  54. COVERSYL PLUS HD [Suspect]
     Active Substance: INDAPAMIDE\PERINDOPRIL ERBUMINE
     Dosage: 1 DF 1 EVERY 1 DAYS
     Route: 065
  55. ENTRESTO [Suspect]
     Active Substance: SACUBITRIL\VALSARTAN
     Dosage: 1 DF 2 EVERY 1 DAYS
     Route: 048
  56. MONTELUKAST SODIUM. [Suspect]
     Active Substance: MONTELUKAST SODIUM
     Dosage: 10 MG 1 EVERY 1 DAYS
     Route: 065
  57. MONTELUKAST SODIUM. [Suspect]
     Active Substance: MONTELUKAST SODIUM
     Dosage: 10 MG 1 EVERY 1 DAYS
     Route: 048
  58. SALBUTAMOL SULFATE [Suspect]
     Active Substance: ALBUTEROL SULFATE
     Dosage: 2 DF
     Route: 055
  59. SPIRONOLACTONE TEVA [Suspect]
     Active Substance: SPIRONOLACTONE
     Dosage: 12.5 MG 1 EVERY 1 DAYS
     Route: 065
  60. APO-DOXY [DOXYCYCLINE HYCLATE] [Suspect]
     Active Substance: DOXYCYCLINE HYCLATE
     Dosage: 100 MG 2 EVERY 1 DAYS
     Route: 065
  61. APO-DOXY [DOXYCYCLINE HYCLATE] [Suspect]
     Active Substance: DOXYCYCLINE HYCLATE
     Dosage: 100 MG 2 EVERY 1 DAYS
     Route: 048
  62. APO-PREDNISONE [Suspect]
     Active Substance: PREDNISONE
     Dosage: 40 MG 1 EVERY 1 DAYS
     Route: 065
  63. BREO ELLIPTA [Suspect]
     Active Substance: FLUTICASONE FUROATE\VILANTEROL TRIFENATATE
     Dosage: 1 DF 1 EVERY 1 DAYS
     Route: 055
  64. BREO ELLIPTA [Suspect]
     Active Substance: FLUTICASONE FUROATE\VILANTEROL TRIFENATATE
     Dosage: 1 DF 1 EVEY 1 DAYS
     Route: 055
  65. ENTRESTO [Suspect]
     Active Substance: SACUBITRIL\VALSARTAN
     Dosage: 1 DF 2 EVERY 1 DAYS
     Route: 048
  66. ENTRESTO [Suspect]
     Active Substance: SACUBITRIL\VALSARTAN
     Dosage: 1 DF 2 EVERY 1 DAYS
     Route: 048
  67. MAR KETOROLAC [Suspect]
     Active Substance: KETOROLAC TROMETHAMINE
     Dosage: 10 MG 3 EVERY 1 DAYS
     Route: 048
  68. MONTELUKAST SODIUM. [Suspect]
     Active Substance: MONTELUKAST SODIUM
     Dosage: 10 MG 1 EVERY 1 DAYS
     Route: 048
  69. SEEBRI BREEZHALER [Suspect]
     Active Substance: GLYCOPYRROLATE
     Dosage: 1 DF 1 EVERY 1 DAYS
     Route: 055
  70. SPIRIVA RESPIMAT [Suspect]
     Active Substance: TIOTROPIUM BROMIDE
     Dosage: 2 DF 1 EVERY 1 DAYS
     Route: 065
  71. FLU VACCINE VII [Concomitant]
     Active Substance: INFLUENZA VIRUS VACCINE
     Indication: PROPHYLAXIS
     Route: 065
  72. CYCLOBENZAPRINE. [Suspect]
     Active Substance: CYCLOBENZAPRINE
     Dosage: 10 MG 3 EVERY 1 DAYS
     Route: 048
  73. ENTRESTO [Suspect]
     Active Substance: SACUBITRIL\VALSARTAN
     Dosage: 1 DF 2 EVERY 1 DAYS
     Route: 048
  74. MONTELUKAST SODIUM. [Suspect]
     Active Substance: MONTELUKAST SODIUM
     Dosage: 10 MG 1 EVERY 1 DAYS
     Route: 048
  75. MONTELUKAST SODIUM. [Suspect]
     Active Substance: MONTELUKAST SODIUM
     Dosage: 10 MG 1 EVERY 1 DAYS
     Route: 065
  76. MONTELUKAST SODIUM. [Suspect]
     Active Substance: MONTELUKAST SODIUM
     Dosage: 10 MG 1 EVERY 1 DAYS
     Route: 065
  77. PREGABALIN SANDOZ [Suspect]
     Active Substance: PREGABALIN
     Dosage: 50 MG 2 EVERY 1 DAYS
     Route: 048
  78. SALBUTAMOL SULFATE [Suspect]
     Active Substance: ALBUTEROL SULFATE
     Dosage: 2 DF
     Route: 055
  79. UMECLIDINIUM BROMIDE [Suspect]
     Active Substance: UMECLIDINIUM BROMIDE
     Dosage: 1 DF 1 EVERY 1 DAYS
     Route: 065
  80. INSPRA [Suspect]
     Active Substance: EPLERENONE
     Dosage: 50 MG 1 EVERY 1 DAYS
     Route: 065
  81. INSPRA [Suspect]
     Active Substance: EPLERENONE
     Dosage: 50 MG 1 EVERY 1 DAYS
     Route: 065
  82. INSPRA [Suspect]
     Active Substance: EPLERENONE
     Dosage: 50 MG 1 EVERY 1 DAYS
     Route: 048
  83. AMLODIPINE [Suspect]
     Active Substance: AMLODIPINE BESYLATE
     Dosage: 2.5 MG 1 EVERY 1 DAYS
     Route: 065
  84. AIROMIR [SALBUTAMOL] [Suspect]
     Active Substance: ALBUTEROL SULFATE
     Dosage: 2 DF
     Route: 065
  85. APO-BISOPROLOL [Suspect]
     Active Substance: BISOPROLOL FUMARATE
     Dosage: 2.5 MG 1 EVERY 1 DAYS
     Route: 065
  86. APO-PREDNISONE [Suspect]
     Active Substance: PREDNISONE
     Dosage: 50 MG 1 EVERY 1 DAYS
     Route: 065
  87. APO-PREDNISONE [Suspect]
     Active Substance: PREDNISONE
     Dosage: 50 MG 1 EVERY 1 DAYS
     Route: 048
  88. APO-PREDNISONE [Suspect]
     Active Substance: PREDNISONE
     Dosage: 25 MG 1 EVERY 1 DAYS
     Route: 065
  89. APO-PREDNISONE [Suspect]
     Active Substance: PREDNISONE
     Dosage: 50 MG 1 EVERY 1 DAYS
     Route: 048
  90. BREO ELLIPTA [Suspect]
     Active Substance: FLUTICASONE FUROATE\VILANTEROL TRIFENATATE
     Dosage: 1 DF 1 EVERY 1 DAYS
     Route: 055
  91. COVERSYL PLUS HD [Suspect]
     Active Substance: INDAPAMIDE\PERINDOPRIL ERBUMINE
     Dosage: 1 DF 1 EVERY 1 DAYS
     Route: 065
  92. COVERSYL PLUS HD [Suspect]
     Active Substance: INDAPAMIDE\PERINDOPRIL ERBUMINE
     Dosage: 1 DF 1 EVERY 1 DAYS
     Route: 065
  93. ENTRESTO [Suspect]
     Active Substance: SACUBITRIL\VALSARTAN
     Dosage: 1 DF 2 EVERY 1 DAYS
     Route: 048
  94. FUROSEMIDE. [Suspect]
     Active Substance: FUROSEMIDE
     Dosage: 20 MG 1 EVERY 1 DAYS
     Route: 065
  95. MEPOLIZUMAB [Suspect]
     Active Substance: MEPOLIZUMAB
     Indication: ASTHMA
     Dosage: 100 MG
     Route: 042
  96. PMS-CARVEDILOL [Suspect]
     Active Substance: CARVEDILOL
     Dosage: 6.25 MG 2 EVERY 1 DAYS
     Route: 065
  97. SEEBRI BREEZHALER [Suspect]
     Active Substance: GLYCOPYRROLATE
     Dosage: 1 DF 1 EVERY 1 DAYS
     Route: 055
  98. SINGULAIR [Suspect]
     Active Substance: MONTELUKAST SODIUM
     Dosage: 10 MG 1 EVERY 1 DAYS
     Route: 065
  99. VENTOLIN HFA [Suspect]
     Active Substance: ALBUTEROL SULFATE
     Dosage: 2 DF
     Route: 065

REACTIONS (14)
  - Asthma-chronic obstructive pulmonary disease overlap syndrome [Unknown]
  - Drug intolerance [Unknown]
  - Pulmonary function test abnormal [Unknown]
  - Asthma [Unknown]
  - Cardiac disorder [Unknown]
  - Eosinophilia [Unknown]
  - Bronchial hyperreactivity [Unknown]
  - Drug ineffective [Unknown]
  - Cardiomyopathy [Unknown]
  - Breath sounds abnormal [Unknown]
  - Bronchitis [Unknown]
  - Dyspnoea [Unknown]
  - Ischaemic cardiomyopathy [Unknown]
  - Obstructive airways disorder [Unknown]
